FAERS Safety Report 5406808-8 (Version None)
Quarter: 2007Q3

REPORT INFORMATION
  Report Type: 
  Country: None (occurrence: None)
  Receive Date: 20070802
  Receipt Date: 20070719
  Transmission Date: 20080115
  Serious: Yes (Death)
  Sender: FDA-Public Use
  Company Number: 2007P1000259

PATIENT
  Age: 13 Year
  Sex: Female

DRUGS (7)
  1. BUSULFEX [Suspect]
     Indication: STEM CELL TRANSPLANT
     Dosage: ;QID;IV
     Route: 042
     Dates: start: 20070116, end: 20070117
  2. VALPROATE SODIUM [Concomitant]
  3. FLUDARABINE PHOSPHATE [Concomitant]
  4. THIOTEPA [Concomitant]
  5. METHOTREXATE [Concomitant]
  6. CYCLOSPORINE [Concomitant]
  7. FILGRASTIM [Concomitant]

REACTIONS (28)
  - ADENOVIRUS INFECTION [None]
  - ANAEMIA [None]
  - ANOREXIA [None]
  - ASCITES [None]
  - BK VIRUS INFECTION [None]
  - BONE MARROW TRANSPLANT [None]
  - BONE MARROW TRANSPLANT REJECTION [None]
  - CYSTITIS HAEMORRHAGIC [None]
  - DIARRHOEA [None]
  - ENTEROCOCCAL SEPSIS [None]
  - FUNGAL INFECTION [None]
  - HISTIOCYTOSIS HAEMATOPHAGIC [None]
  - HYDRONEPHROSIS [None]
  - HYPERTHERMIA [None]
  - HYPOALBUMINAEMIA [None]
  - HYPOKALAEMIA [None]
  - MALAISE [None]
  - NAUSEA [None]
  - NO THERAPEUTIC RESPONSE [None]
  - PLEURAL EFFUSION [None]
  - STAPHYLOCOCCAL SEPSIS [None]
  - STEM CELL TRANSPLANT [None]
  - STOMATITIS [None]
  - SURGICAL PROCEDURE REPEATED [None]
  - THROMBOTIC MICROANGIOPATHY [None]
  - TRANSPLANT FAILURE [None]
  - URINARY BLADDER HAEMORRHAGE [None]
  - VOMITING [None]
